FAERS Safety Report 9210630 (Version 3)
Quarter: 2013Q2

REPORT INFORMATION
  Report Type: Report from Study
  Country: FR (occurrence: FR)
  Receive Date: 20130404
  Receipt Date: 20130516
  Transmission Date: 20140414
  Serious: Yes (Hospitalization, Other)
  Sender: FDA-Public Use
  Company Number: FR-AMGEN-FRANI2013023520

PATIENT
  Age: 80 Year
  Sex: Male
  Weight: 80 kg

DRUGS (3)
  1. PEGFILGRASTIM [Suspect]
     Indication: PROPHYLAXIS
     Dosage: 6 MG, UNK
     Route: 058
     Dates: start: 20130218, end: 20130218
  2. ENDOXAN [Concomitant]
     Dosage: 200 MUG/M2, UNK
     Dates: start: 20130213, end: 20130217
  3. RITUXIMAB [Concomitant]
     Dosage: 375 MUG/M2, QMO

REACTIONS (3)
  - Altered state of consciousness [Unknown]
  - Dehydration [Unknown]
  - Febrile neutropenia [Recovered/Resolved]
